FAERS Safety Report 7524671-6 (Version None)
Quarter: 2011Q2

REPORT INFORMATION
  Report Type: 
  Country: None (occurrence: None)
  Receive Date: 20110601
  Receipt Date: 20110601
  Transmission Date: 20111010
  Serious: Yes (Hospitalization)
  Sender: FDA-Public Use
  Company Number: None

PATIENT
  Sex: Male
  Weight: 97.1 kg

DRUGS (13)
  1. GABAPENTIN [Concomitant]
  2. VALSARTAN [Concomitant]
  3. CLOPIDOGREL [Concomitant]
  4. CARVEDILOL [Concomitant]
  5. FUROSEMIDE [Concomitant]
  6. HUMALOG [Concomitant]
  7. CILOSTAZOL [Concomitant]
  8. LANTUS [Concomitant]
  9. CEFEPIME [Suspect]
     Indication: OSTEOMYELITIS
     Dosage: 2GM Q12HR IV
     Route: 042
     Dates: start: 20100510, end: 20100513
  10. CEFEPIME [Suspect]
     Indication: OTITIS EXTERNA
     Dosage: 2GM Q12HR IV
     Route: 042
     Dates: start: 20100510, end: 20100513
  11. FLUCONAZOLE [Suspect]
     Indication: CANDIDIASIS
     Dosage: 400MG DAILY PO
     Route: 048
     Dates: start: 20100510, end: 20100513
  12. AMLODIPINE [Concomitant]
  13. ASPIRIN [Concomitant]

REACTIONS (4)
  - MYOCLONUS [None]
  - INCORRECT DOSE ADMINISTERED [None]
  - RENAL FAILURE ACUTE [None]
  - APHASIA [None]
